FAERS Safety Report 8721003 (Version 4)
Quarter: 2012Q4

REPORT INFORMATION
  Report Type: 
  Country: US (occurrence: US)
  Receive Date: 20120813
  Receipt Date: 20121217
  Transmission Date: 20130627
  Serious: Yes (Hospitalization, Other)
  Sender: FDA-Public Use
  Company Number: US-MPIJNJ-2012-05653

PATIENT
  Age: 62 Year
  Sex: Male
  Weight: 130 kg

DRUGS (9)
  1. VELCADE [Suspect]
     Indication: MULTIPLE MYELOMA
     Dosage: 1.3 mg/m2, Cyclic
     Route: 042
     Dates: start: 20110613, end: 20110621
  2. THALIDOMIDE [Suspect]
     Indication: MULTIPLE MYELOMA
     Dosage: UNK
     Dates: start: 20110614, end: 20110617
  3. DEXAMETHASONE [Suspect]
     Indication: MULTIPLE MYELOMA
     Dosage: UNK
     Dates: start: 20110614, end: 20110617
  4. CISPLATIN [Suspect]
     Indication: MULTIPLE MYELOMA
     Dosage: UNK
     Dates: start: 20110614, end: 20110617
  5. DOXORUBICIN [Suspect]
     Indication: MULTIPLE MYELOMA
     Dosage: UNK
     Dates: start: 20110614, end: 20110617
  6. CYCLOPHOSPHAMIDE [Suspect]
     Indication: MULTIPLE MYELOMA
     Dosage: UNK
     Dates: start: 20110614, end: 20110617
  7. ETOPOSIDE [Suspect]
     Indication: MULTIPLE MYELOMA
     Dosage: UNK
     Dates: start: 20110614, end: 20110617
  8. CIPROFLOXACIN [Concomitant]
     Indication: PROPHYLAXIS
     Dosage: UNK
     Dates: start: 20110513
  9. NEUPOGEN [Concomitant]
     Indication: PRODUCT USED FOR UNKNOWN INDICATION
     Dosage: UNK
     Dates: end: 20110628

REACTIONS (4)
  - Leukocytosis [Recovered/Resolved with Sequelae]
  - Wound infection [Recovered/Resolved with Sequelae]
  - Thrombocytopenia [Unknown]
  - Anaemia [Unknown]
